FAERS Safety Report 5953496-8 (Version None)
Quarter: 2008Q4

REPORT INFORMATION
  Report Type: 
  Country: None (occurrence: None)
  Receive Date: 20081114
  Receipt Date: 20081106
  Transmission Date: 20090506
  Serious: Yes (Life-Threatening)
  Sender: FDA-Public Use
  Company Number: FR-ROCHE-595747

PATIENT
  Age: 47 Year
  Sex: Male

DRUGS (4)
  1. RIVOTRIL [Suspect]
     Indication: DRUG USE FOR UNKNOWN INDICATION
     Dosage: DOSE REPORTED AS 30 DROPS (3 MG).
     Route: 048
     Dates: start: 20081002
  2. TERCIAN [Suspect]
     Indication: DRUG USE FOR UNKNOWN INDICATION
     Dosage: REPORTED DOSE: 2 X 50 MG.
     Route: 030
     Dates: start: 20081002
  3. ZYPREXA [Suspect]
     Indication: DRUG USE FOR UNKNOWN INDICATION
     Dosage: DOSE REPORTED AS 20 MG.
     Route: 048
     Dates: start: 20081002
  4. CLOPIXOL [Suspect]
     Indication: DRUG USE FOR UNKNOWN INDICATION
     Dosage: DOSE REPORTED AS 50 MG.
     Route: 030
     Dates: start: 20081002

REACTIONS (3)
  - ELECTROCARDIOGRAM QT PROLONGED [None]
  - RESPIRATORY ARREST [None]
  - SEDATION [None]
